FAERS Safety Report 10059470 (Version 7)
Quarter: 2015Q1

REPORT INFORMATION
  Report Type: Report from Study
  Country: JP (occurrence: JP)
  Receive Date: 20140404
  Receipt Date: 20150227
  Transmission Date: 20150720
  Serious: Yes (Hospitalization, Other)
  Sender: FDA-Public Use
  Company Number: JP-PFIZER INC-2012149260

PATIENT
  Age: 83 Year
  Sex: Male
  Weight: 60.8 kg

DRUGS (4)
  1. TEMSIROLIMUS [Suspect]
     Active Substance: TEMSIROLIMUS
     Dosage: 25 MG, WEEKLY
     Route: 042
     Dates: start: 20120307, end: 20120425
  2. CHLOR-TRIMETON [Concomitant]
     Active Substance: CHLORPHENIRAMINE MALEATE
     Indication: PROPHYLAXIS
     Dosage: 10 MG, 1X/DAY
     Route: 042
     Dates: start: 20120105, end: 20120105
  3. TEMSIROLIMUS [Suspect]
     Active Substance: TEMSIROLIMUS
     Indication: RENAL CELL CARCINOMA
     Dosage: 25 MG, 1X/DAY
     Route: 041
     Dates: start: 20120105, end: 20120118
  4. CHLOR-TRIMETON [Concomitant]
     Active Substance: CHLORPHENIRAMINE MALEATE
     Dosage: 10 MG, WEEKLY
     Route: 042
     Dates: start: 20120307, end: 20120425

REACTIONS (4)
  - Hyperkalaemia [Recovering/Resolving]
  - Chronic kidney disease [Recovering/Resolving]
  - Bronchitis [Recovered/Resolved]
  - Dehydration [Recovering/Resolving]

NARRATIVE: CASE EVENT DATE: 20120113
